FAERS Safety Report 24603669 (Version 1)
Quarter: 2024Q4

REPORT INFORMATION
  Report Type: Spontaneous
  Country: US (occurrence: None)
  Receive Date: 20241109
  Receipt Date: 20241109
  Transmission Date: 20250114
  Serious: Yes (Other)
  Sender: Public
  Company Number: None

PATIENT
  Age: 51 Year
  Sex: Female
  Weight: 69.75 kg

DRUGS (1)
  1. CLARISCAN [Suspect]
     Active Substance: GADOTERATE MEGLUMINE
     Indication: Magnetic resonance cholangiopancreatography
     Dates: start: 20241108, end: 20241108

REACTIONS (9)
  - Burning sensation [None]
  - Pruritus [None]
  - Urticaria [None]
  - Swelling face [None]
  - Throat tightness [None]
  - Euphoric mood [None]
  - Fatigue [None]
  - Pain [None]
  - Feeling abnormal [None]

NARRATIVE: CASE EVENT DATE: 20241108
